FAERS Safety Report 5423821-5 (Version None)
Quarter: 2007Q3

REPORT INFORMATION
  Report Type: 
  Country: None (occurrence: None)
  Receive Date: 20070823
  Receipt Date: 20070815
  Transmission Date: 20080115
  Serious: Yes (Other)
  Sender: FDA-Public Use
  Company Number: US-ELI_LILLY_AND_COMPANY-US200708003129

PATIENT
  Age: 63 Year
  Sex: Male

DRUGS (2)
  1. HUMALOG [Suspect]
     Indication: DIABETES MELLITUS
     Dosage: 3 U, DAILY (1/D)
     Dates: start: 19970101
  2. LEVEMIR [Concomitant]
     Dosage: 1 U, EACH EVENING

REACTIONS (4)
  - BLINDNESS [None]
  - BLOOD GLUCOSE DECREASED [None]
  - HYPOACUSIS [None]
  - LOSS OF CONSCIOUSNESS [None]
